FAERS Safety Report 20974456 (Version 1)
Quarter: 2022Q2

REPORT INFORMATION
  Report Type: Spontaneous
  Country: US (occurrence: None)
  Receive Date: 20220616
  Receipt Date: 20220616
  Transmission Date: 20220720
  Serious: Yes (Hospitalization)
  Sender: FDA-Public Use
  Company Number: None

PATIENT
  Sex: 0

DRUGS (1)
  1. LETROZOLE [Suspect]
     Active Substance: LETROZOLE

REACTIONS (2)
  - Aortic embolus [None]
  - Depression [None]
